FAERS Safety Report 5573883-X (Version None)
Quarter: 2007Q4

REPORT INFORMATION
  Report Type: 
  Country: None (occurrence: None)
  Receive Date: 20071226
  Receipt Date: 20071210
  Transmission Date: 20080405
  Serious: Yes (Death, Life-Threatening, Hospitalization)
  Sender: FDA-Public Use
  Company Number: JP-AMGEN-US235420

PATIENT
  Sex: Female
  Weight: 51 kg

DRUGS (7)
  1. ENBREL [Suspect]
     Indication: RHEUMATOID ARTHRITIS
     Route: 058
     Dates: start: 20070528, end: 20070622
  2. AZULFIDINE EN-TABS [Concomitant]
     Dosage: UNKNOWN
     Route: 048
  3. SELBEX [Concomitant]
     Route: 048
     Dates: start: 20011201
  4. ALFAROL [Concomitant]
     Route: 048
     Dates: start: 20011201, end: 20070625
  5. VOLTAREN [Concomitant]
     Route: 048
     Dates: start: 20011201, end: 20070625
  6. RIMATIL [Concomitant]
     Route: 048
     Dates: start: 20011201, end: 20070625
  7. PREDONINE [Concomitant]
     Route: 048
     Dates: start: 20011201, end: 20070625

REACTIONS (4)
  - INTERSTITIAL LUNG DISEASE [None]
  - PNEUMONIA BACTERIAL [None]
  - RESPIRATORY FAILURE [None]
  - STAPHYLOCOCCAL INFECTION [None]
